FAERS Safety Report 8256712-5 (Version None)
Quarter: 2012Q2

REPORT INFORMATION
  Report Type: 
  Country: None (occurrence: None)
  Receive Date: 20120403
  Receipt Date: 20120321
  Transmission Date: 20120825
  Serious: Yes (Death, Life-Threatening, Other)
  Sender: FDA-Public Use
  Company Number: US-NAPPMUNDI-USA-2012-0083497

PATIENT
  Age: 24 Year
  Sex: Male
  Weight: 97.052 kg

DRUGS (3)
  1. OXYCODONE HCL [Suspect]
     Indication: DRUG ABUSE
  2. HEROIN [Suspect]
     Indication: DRUG ABUSE
  3. XANAX [Suspect]
     Indication: DRUG ABUSE

REACTIONS (5)
  - OVERDOSE [None]
  - SUBSTANCE ABUSE [None]
  - RESPIRATORY ARREST [None]
  - SEDATION [None]
  - TOXICITY TO VARIOUS AGENTS [None]
